FAERS Safety Report 8364956-7 (Version None)
Quarter: 2012Q2

REPORT INFORMATION
  Report Type: 
  Country: None (occurrence: None)
  Receive Date: 20120516
  Receipt Date: 20120510
  Transmission Date: 20120825
  Serious: Yes (Hospitalization)
  Sender: FDA-Public Use
  Company Number: US-GLAXOSMITHKLINE-A0897747A

PATIENT
  Age: 43 Year
  Sex: Male

DRUGS (7)
  1. DEPAKOTE [Concomitant]
  2. METOPROLOL TARTRATE [Concomitant]
  3. SEROQUEL [Concomitant]
  4. ABILIFY [Concomitant]
  5. AVANDIA [Suspect]
     Indication: DIABETES MELLITUS
     Dosage: 8MG PER DAY
     Route: 048
     Dates: start: 20040901, end: 20050101
  6. LISINOPRIL [Concomitant]
  7. SIMVASTATIN [Concomitant]

REACTIONS (3)
  - ATRIAL FIBRILLATION [None]
  - HYPERTENSION [None]
  - CORONARY ARTERY DISEASE [None]
